FAERS Safety Report 12435840 (Version 1)
Quarter: 2016Q2

REPORT INFORMATION
  Report Type: Spontaneous
  Country: US (occurrence: US)
  Receive Date: 20160603
  Receipt Date: 20160603
  Transmission Date: 20160815
  Serious: No
  Sender: FDA-Public Use
  Company Number: US-TEVA-660730USA

PATIENT
  Sex: Female

DRUGS (1)
  1. COPAXONE [Suspect]
     Active Substance: GLATIRAMER ACETATE
     Dosage: FORM STRENGTH UNKNOWN

REACTIONS (12)
  - Thinking abnormal [Unknown]
  - Skin reaction [Recovered/Resolved]
  - Chest discomfort [Recovered/Resolved]
  - Dyspnoea [Recovered/Resolved]
  - Anxiety [Recovered/Resolved]
  - Eye disorder [Unknown]
  - Visual impairment [Unknown]
  - Hypersensitivity [Recovered/Resolved]
  - Tremor [Unknown]
  - Anxiety [Unknown]
  - Headache [Recovered/Resolved]
  - Dizziness [Recovered/Resolved]
